FAERS Safety Report 14573253 (Version 1)
Quarter: 2018Q1

REPORT INFORMATION
  Report Type: Spontaneous
  Country: DE (occurrence: DE)
  Receive Date: 20180226
  Receipt Date: 20180226
  Transmission Date: 20180509
  Serious: Yes (Death, Life-Threatening, Hospitalization, Other)
  Sender: FDA-Public Use
  Company Number: DE-WEST-WARD PHARMACEUTICALS CORP.-DE-H14001-18-01409

PATIENT
  Age: 56 Year
  Sex: Female
  Weight: 49 kg

DRUGS (57)
  1. FOLINIC ACID [Suspect]
     Active Substance: LEUCOVORIN
     Route: 042
     Dates: start: 20151124, end: 20151124
  2. 5-FLUOROURACIL [Suspect]
     Active Substance: FLUOROURACIL
     Route: 042
     Dates: start: 20160126, end: 20160127
  3. OXALIPLATIN. [Suspect]
     Active Substance: OXALIPLATIN
     Route: 042
     Dates: start: 20160108, end: 20160212
  4. HALOPERIDOL. [Concomitant]
     Active Substance: HALOPERIDOL
     Route: 042
     Dates: start: 20150901, end: 20150902
  5. NEXIUM [Concomitant]
     Active Substance: ESOMEPRAZOLE MAGNESIUM
     Dosage: (1)
     Route: 042
     Dates: start: 20160225
  6. PEGFILGRASTIM [Concomitant]
     Active Substance: PEGFILGRASTIM
     Indication: PROPHYLAXIS
     Dosage: SINCE 2ND CYCLE OF THERAPY.
     Route: 058
     Dates: start: 20150620, end: 20151023
  7. 5-FLUOROURACIL [Suspect]
     Active Substance: FLUOROURACIL
     Route: 042
     Dates: start: 20150903, end: 20151106
  8. 5-FLUOROURACIL [Suspect]
     Active Substance: FLUOROURACIL
     Route: 042
     Dates: start: 20160108, end: 20160110
  9. OXALIPLATIN. [Suspect]
     Active Substance: OXALIPLATIN
     Route: 042
     Dates: start: 20151124, end: 20151124
  10. AVASTIN [Suspect]
     Active Substance: BEVACIZUMAB
     Route: 042
     Dates: start: 20160212, end: 20160212
  11. HALOPERIDOL. [Concomitant]
     Active Substance: HALOPERIDOL
     Route: 048
     Dates: start: 20150902, end: 20151101
  12. NOVAMINSULFON [Concomitant]
     Active Substance: METAMIZOLE
     Route: 048
     Dates: start: 20160212
  13. NOVAMINSULFON [Concomitant]
     Active Substance: METAMIZOLE
     Route: 042
     Dates: start: 20160225
  14. BEPANTHENE [Concomitant]
     Active Substance: DEXPANTHENOL
     Indication: PROPHYLAXIS
  15. FOLINIC ACID [Suspect]
     Active Substance: LEUCOVORIN
     Dosage: 240-468 MG (1)
     Route: 042
     Dates: start: 20150603, end: 20160212
  16. IRINOTECAN [Suspect]
     Active Substance: IRINOTECAN
     Indication: COLORECTAL CANCER
     Route: 042
     Dates: start: 20150603, end: 20150630
  17. 5-FLUOROURACIL [Suspect]
     Active Substance: FLUOROURACIL
     Route: 040
     Dates: start: 20150903, end: 20151104
  18. 5-FLUOROURACIL [Suspect]
     Active Substance: FLUOROURACIL
     Route: 040
     Dates: start: 20151124, end: 20151124
  19. OXALIPLATIN. [Suspect]
     Active Substance: OXALIPLATIN
     Route: 042
     Dates: start: 20150903, end: 20151104
  20. NOVAMINSULFON [Concomitant]
     Active Substance: METAMIZOLE
     Route: 042
     Dates: start: 20150826, end: 20150831
  21. NOVAMINSULFON [Concomitant]
     Active Substance: METAMIZOLE
     Route: 042
     Dates: start: 20150901, end: 20150902
  22. KEPPRA [Concomitant]
     Active Substance: LEVETIRACETAM
     Indication: PRODUCT USED FOR UNKNOWN INDICATION
     Route: 042
     Dates: start: 20160301
  23. 5-FLUOROURACIL [Suspect]
     Active Substance: FLUOROURACIL
     Indication: COLORECTAL CANCER
     Dosage: L
     Route: 042
     Dates: start: 20150603, end: 20150805
  24. 5-FLUOROURACIL [Suspect]
     Active Substance: FLUOROURACIL
     Dosage: 304-312 MG (1)
     Route: 040
     Dates: start: 20151124, end: 20160212
  25. 5-FLUOROURACIL [Suspect]
     Active Substance: FLUOROURACIL
     Route: 040
     Dates: start: 20160126, end: 20160126
  26. NOVAMINSULFON [Concomitant]
     Active Substance: METAMIZOLE
     Route: 048
     Dates: start: 20150902, end: 20151103
  27. EFFENTORA [Concomitant]
     Active Substance: FENTANYL CITRATE
     Indication: PAIN
     Route: 048
  28. MIRTAZAPIN [Concomitant]
     Active Substance: MIRTAZAPINE
     Indication: ADJUSTMENT DISORDER WITH DEPRESSED MOOD
     Dosage: 0-0-1
     Route: 048
  29. MIRTAZAPIN [Concomitant]
     Active Substance: MIRTAZAPINE
     Route: 048
     Dates: start: 20150605, end: 20151208
  30. FOLINIC ACID [Suspect]
     Active Substance: LEUCOVORIN
     Indication: COLORECTAL CANCER
     Route: 042
     Dates: start: 20150603, end: 20150805
  31. FOLINIC ACID [Suspect]
     Active Substance: LEUCOVORIN
     Route: 042
     Dates: start: 20150903, end: 20151104
  32. FOLINIC ACID [Suspect]
     Active Substance: LEUCOVORIN
     Route: 042
     Dates: start: 20160108, end: 20160212
  33. IRINOTECAN [Suspect]
     Active Substance: IRINOTECAN
     Route: 042
     Dates: start: 20150723, end: 20150805
  34. OXALIPLATIN. [Suspect]
     Active Substance: OXALIPLATIN
     Route: 042
     Dates: start: 20160126, end: 20160126
  35. NEXIUM [Concomitant]
     Active Substance: ESOMEPRAZOLE MAGNESIUM
     Indication: PROPHYLAXIS
     Route: 048
     Dates: start: 20150602, end: 20160224
  36. NOVAMINSULFON [Concomitant]
     Active Substance: METAMIZOLE
     Route: 042
     Dates: start: 20150831, end: 20150901
  37. OXALIPLATIN. [Suspect]
     Active Substance: OXALIPLATIN
     Route: 042
     Dates: start: 20160212, end: 20160212
  38. ONDANSETRON [Concomitant]
     Active Substance: ONDANSETRON
     Indication: NAUSEA
     Route: 048
     Dates: start: 20150604
  39. NOVAMINSULFON [Concomitant]
     Active Substance: METAMIZOLE
     Indication: COLORECTAL CANCER METASTATIC
     Route: 065
  40. NOVAMINSULFON [Concomitant]
     Active Substance: METAMIZOLE
     Route: 042
     Dates: start: 20160225, end: 20160226
  41. NOVALGIN (METAMIZOLE SODIUM) [Concomitant]
     Active Substance: METAMIZOLE SODIUM
     Indication: BACK PAIN
     Route: 042
     Dates: start: 20150721, end: 20150810
  42. NOVALGIN (METAMIZOLE SODIUM) [Concomitant]
     Active Substance: METAMIZOLE SODIUM
     Route: 042
     Dates: start: 20160225, end: 20160226
  43. FOLINIC ACID [Suspect]
     Active Substance: LEUCOVORIN
     Route: 042
     Dates: start: 20160126, end: 20160126
  44. 5-FLUOROURACIL [Suspect]
     Active Substance: FLUOROURACIL
     Route: 042
     Dates: start: 20151124, end: 20151126
  45. NOVAMINSULFON [Concomitant]
     Active Substance: METAMIZOLE
     Route: 042
     Dates: start: 20150810, end: 20150826
  46. NOVALGIN (METAMIZOLE SODIUM) [Concomitant]
     Active Substance: METAMIZOLE SODIUM
     Indication: TUMOUR PAIN
     Route: 048
     Dates: start: 20150602, end: 20150728
  47. NOVALGIN (METAMIZOLE SODIUM) [Concomitant]
     Active Substance: METAMIZOLE SODIUM
     Route: 048
     Dates: start: 20150902
  48. BEPANTHENE [Concomitant]
     Active Substance: DEXPANTHENOL
     Indication: MUCOSAL INFLAMMATION
     Dosage: 1-1-1 (3)
     Route: 048
  49. 5-FLUOROURACIL [Suspect]
     Active Substance: FLUOROURACIL
     Route: 040
     Dates: start: 20160108, end: 20160112
  50. OXALIPLATIN. [Suspect]
     Active Substance: OXALIPLATIN
     Indication: COLORECTAL CANCER
     Dosage: 1 DF
     Route: 042
     Dates: start: 20150603, end: 20150805
  51. AVASTIN [Suspect]
     Active Substance: BEVACIZUMAB
     Indication: COLORECTAL CANCER
     Dosage: DATE OF LAST DOSE PRIOR TO SAE: 30/JUN/2015?5 MG/KG
     Route: 042
     Dates: start: 20150603, end: 20151124
  52. AVASTIN [Suspect]
     Active Substance: BEVACIZUMAB
     Route: 042
  53. HALOPERIDOL. [Concomitant]
     Active Substance: HALOPERIDOL
     Indication: VOMITING
     Route: 042
     Dates: start: 20150831, end: 20150901
  54. HALOPERIDOL. [Concomitant]
     Active Substance: HALOPERIDOL
     Route: 042
     Dates: start: 20150721, end: 20150810
  55. HALOPERIDOL. [Concomitant]
     Active Substance: HALOPERIDOL
     Route: 042
     Dates: start: 20150810, end: 20150826
  56. HALOPERIDOL. [Concomitant]
     Active Substance: HALOPERIDOL
     Route: 042
     Dates: start: 20150826, end: 20150831
  57. ZOFRAN [Concomitant]
     Active Substance: ONDANSETRON HYDROCHLORIDE
     Indication: VOMITING
     Dosage: 1-0-0
     Route: 048
     Dates: start: 20150605

REACTIONS (9)
  - Pneumonia [Recovered/Resolved]
  - Pulmonary embolism [Recovered/Resolved]
  - Optic nerve disorder [Unknown]
  - Disturbance in attention [Fatal]
  - Overdose [Unknown]
  - Metastases to meninges [Recovering/Resolving]
  - Venous thrombosis limb [Recovered/Resolved]
  - Neutropenia [Recovered/Resolved]
  - Headache [Not Recovered/Not Resolved]

NARRATIVE: CASE EVENT DATE: 20150617
